FAERS Safety Report 25040099 (Version 2)
Quarter: 2025Q1

REPORT INFORMATION
  Report Type: Report from Study
  Country: US (occurrence: US)
  Receive Date: 20250305
  Receipt Date: 20250311
  Transmission Date: 20250408
  Serious: Yes (Hospitalization)
  Sender: INSMED
  Company Number: US-INSMED-2023-04636-USAA

PATIENT
  Sex: Female

DRUGS (1)
  1. ARIKAYCE [Suspect]
     Active Substance: AMIKACIN
     Indication: Mycobacterium avium complex infection
     Route: 055
     Dates: start: 20231031, end: 202311

REACTIONS (3)
  - Hyponatraemia [Unknown]
  - Pneumonia [Not Recovered/Not Resolved]
  - Vomiting [Unknown]

NARRATIVE: CASE EVENT DATE: 20230101
